FAERS Safety Report 10440783 (Version 1)
Quarter: 2014Q3

REPORT INFORMATION
  Report Type: Spontaneous
  Country: US (occurrence: None)
  Receive Date: 20140908
  Receipt Date: 20140908
  Transmission Date: 20150326
  Serious: Yes (Other)
  Sender: FDA-Public Use
  Company Number: None

PATIENT
  Age: 61 Year
  Sex: Female
  Weight: 67.59 kg

DRUGS (1)
  1. PROPOFOL. [Suspect]
     Active Substance: PROPOFOL
     Indication: ANAESTHESIA
     Dosage: UNKNOWN DOSE  ONE TIME  INTO A VEIN
     Route: 042

REACTIONS (3)
  - Pain in extremity [None]
  - Wrong technique in drug usage process [None]
  - Blood pressure increased [None]

NARRATIVE: CASE EVENT DATE: 20140513
